FAERS Safety Report 4543888-6 (Version None)
Quarter: 2005Q1

REPORT INFORMATION
  Report Type: 
  Country: None (occurrence: None)
  Receive Date: 20050103
  Receipt Date: 20040302
  Transmission Date: 20050727
  Serious: Yes (Other)
  Sender: FDA-Public Use
  Company Number: GXKR2004FR00567

PATIENT
  Age: 60 Year
  Sex: Male

DRUGS (4)
  1. ENALAPRIL (NGX)(ENALAPRIL MALEATE) UNKNOWN [Suspect]
     Indication: CARDIOMYOPATHY
     Dosage: 20 MG DAILY
  2. CYCLOSPORINE [Concomitant]
  3. PREDNISONE [Concomitant]
  4. OMEPRAZOLE [Concomitant]

REACTIONS (1)
  - INAPPROPRIATE ANTIDIURETIC HORMONE SECRETION [None]
